FAERS Safety Report 6455233-X (Version None)
Quarter: 2009Q4

REPORT INFORMATION
  Report Type: 
  Country: None (occurrence: None)
  Receive Date: 20091119
  Receipt Date: 20091112
  Transmission Date: 20100525
  Serious: Yes (Death)
  Sender: FDA-Public Use
  Company Number: 432981

PATIENT
  Age: 12 Year
  Sex: Male

DRUGS (6)
  1. METHYLPREDNISOLONE [Suspect]
     Indication: CHRONIC GRANULOMATOUS DISEASE
     Dosage: 1.33-2 MG/KG, DAILY;
  2. METHYLPREDNISOLONE [Suspect]
     Indication: COLITIS
     Dosage: 1.33-2 MG/KG, DAILY;
  3. AZATHIOPRINE [Suspect]
     Indication: CHRONIC GRANULOMATOUS DISEASE
     Dosage: 50 MG,
  4. AZATHIOPRINE [Suspect]
     Indication: COLITIS
     Dosage: 50 MG,
  5. STEROID ANTIBACTERIALS [Suspect]
     Indication: CHRONIC GRANULOMATOUS DISEASE
     Dosage: RECTAL
     Route: 054
  6. STEROID ANTIBACTERIALS [Suspect]
     Indication: COLITIS
     Dosage: RECTAL
     Route: 054

REACTIONS (7)
  - CEREBRAL FUNGAL INFECTION [None]
  - IATROGENIC INJURY [None]
  - INFECTION IN AN IMMUNOCOMPROMISED HOST [None]
  - LUNG NEOPLASM [None]
  - MUCORMYCOSIS [None]
  - OPPORTUNISTIC INFECTION [None]
  - SPLEEN DISORDER [None]
